FAERS Safety Report 4526079-4 (Version None)
Quarter: 2004Q4

REPORT INFORMATION
  Report Type: 
  Country: None (occurrence: None)
  Receive Date: 20041129
  Receipt Date: 20040706
  Transmission Date: 20050328
  Serious: Yes (Hospitalization)
  Sender: FDA-Public Use
  Company Number: USA040771835

PATIENT
  Age: 83 Year
  Sex: Female
  Weight: 55 kg

DRUGS (5)
  1. ZYPREXA [Suspect]
     Indication: PSYCHOTIC DISORDER
     Dosage: 5 MG DAY
     Dates: start: 20040601
  2. CELEBREX [Concomitant]
  3. FOSAMAX [Concomitant]
  4. ESCITALOPRAM [Concomitant]
  5. PROCRIT (ERYTHROPOIETIN) [Concomitant]

REACTIONS (2)
  - ASTHENIA [None]
  - DRUG INEFFECTIVE [None]
